FAERS Safety Report 20546880 (Version 2)
Quarter: 2022Q3

REPORT INFORMATION
  Report Type: Spontaneous
  Country: IT (occurrence: IT)
  Receive Date: 20220303
  Receipt Date: 20220721
  Transmission Date: 20221027
  Serious: Yes (Other)
  Sender: FDA-Public Use
  Company Number: IT-BRISTOL-MYERS SQUIBB COMPANY-BMS-2021-142107

PATIENT
  Age: 72 Year
  Sex: Female

DRUGS (9)
  1. METHOTREXATE [Suspect]
     Active Substance: METHOTREXATE
     Dosage: 3 DOSE PFIZER
     Dates: start: 20211012
  2. ORENCIA [Suspect]
     Active Substance: ABATACEPT
     Indication: Sacroiliitis
     Dosage: 125 MG, WEEKLY
     Route: 058
     Dates: start: 20211015, end: 20211217
  3. ORENCIA [Suspect]
     Active Substance: ABATACEPT
     Indication: Rheumatoid arthritis
  4. COVID-19 VACCINE [Concomitant]
     Indication: COVID-19 immunisation
     Dosage: DOSE 3 (BOOSTER), SINGLE
     Route: 065
     Dates: start: 20211012, end: 20211012
  5. NAPROXEN [Concomitant]
     Active Substance: NAPROXEN
     Dosage: UNK
     Route: 065
  6. FOLIC ACID [Concomitant]
     Active Substance: FOLIC ACID
     Dosage: UNK
     Route: 065
  7. ILOPROST [Concomitant]
     Active Substance: ILOPROST
     Dosage: UNK
     Route: 065
  8. LEVOTHYROXINE [Concomitant]
     Active Substance: LEVOTHYROXINE
     Dosage: 75 MG
     Route: 065
  9. CHOLECALCIFEROL [Concomitant]
     Active Substance: CHOLECALCIFEROL
     Dosage: UNK
     Route: 065

REACTIONS (4)
  - CREST syndrome [Unknown]
  - Extremity necrosis [Unknown]
  - Skin ulcer [Recovering/Resolving]
  - Raynaud^s phenomenon [Unknown]

NARRATIVE: CASE EVENT DATE: 20211201
